FAERS Safety Report 8377165-2 (Version None)
Quarter: 2012Q2

REPORT INFORMATION
  Report Type: 
  Country: None (occurrence: None)
  Receive Date: 20120522
  Receipt Date: 20120509
  Transmission Date: 20120825
  Serious: Yes (Other)
  Sender: FDA-Public Use
  Company Number: CA-COVIDIEN/TYCO HEALTHCARE/MALLINCKRODT-T201201880

PATIENT
  Age: 1 Day
  Sex: Female

DRUGS (1)
  1. METHADONE HCL [Suspect]

REACTIONS (2)
  - DRUG WITHDRAWAL SYNDROME NEONATAL [None]
  - FOETAL EXPOSURE DURING PREGNANCY [None]
